FAERS Safety Report 10420935 (Version 1)
Quarter: 2014Q3

REPORT INFORMATION
  Report Type: Spontaneous
  Country: US (occurrence: None)
  Receive Date: 20140829
  Receipt Date: 20140829
  Transmission Date: 20150326
  Serious: Yes (Hospitalization)
  Sender: FDA-Public Use
  Company Number: None

PATIENT
  Age: 62 Year
  Sex: Male

DRUGS (1)
  1. CLOZARIL [Suspect]
     Active Substance: CLOZAPINE
     Dosage: 400 MG QHS ORAL
     Route: 048
     Dates: start: 201206, end: 201408

REACTIONS (1)
  - White blood cell disorder [None]

NARRATIVE: CASE EVENT DATE: 20140828
